FAERS Safety Report 8741131 (Version 2)
Quarter: 2012Q4

REPORT INFORMATION
  Report Type: 
  Country: US (occurrence: US)
  Receive Date: 20120824
  Receipt Date: 20121206
  Transmission Date: 20130627
  Serious: No
  Sender: FDA-Public Use
  Company Number: US-ASTRAZENECA-2012SE03718

PATIENT
  Age: 74 Year
  Sex: Female

DRUGS (3)
  1. SYMBICORT PMDI [Suspect]
     Route: 055
  2. ACCOLATE [Suspect]
     Route: 048
  3. UNSPECIFIED INGREDIENT [Suspect]
     Route: 065

REACTIONS (6)
  - Arthritis [Unknown]
  - Adverse drug reaction [Unknown]
  - Aphagia [Unknown]
  - Dysgeusia [Unknown]
  - Cognitive disorder [Unknown]
  - Malaise [Unknown]
